FAERS Safety Report 10040716 (Version 1)
Quarter: 2014Q1

REPORT INFORMATION
  Report Type: Spontaneous
  Country: US (occurrence: None)
  Receive Date: 20140326
  Receipt Date: 20140326
  Transmission Date: 20141002
  Serious: Yes (Life-Threatening, Disabling, Other)
  Sender: FDA-Public Use
  Company Number: None

PATIENT
  Age: 41 Year
  Sex: Male
  Weight: 86.18 kg

DRUGS (1)
  1. DEPO-MEDROL 40 MG X8 [Suspect]
     Indication: BACK PAIN
     Dates: start: 20130125

REACTIONS (6)
  - Meningitis [None]
  - General physical health deterioration [None]
  - Completed suicide [None]
  - Pain [None]
  - Dysstasia [None]
  - Impaired work ability [None]
